FAERS Safety Report 14823958 (Version 6)
Quarter: 2019Q1

REPORT INFORMATION
  Report Type: Report from Study
  Country: US (occurrence: US)
  Receive Date: 20180428
  Receipt Date: 20190210
  Transmission Date: 20190417
  Serious: Yes (Other)
  Sender: FDA-Public Use
  Company Number: PHEH2018US016538

PATIENT
  Age: 36 Year
  Sex: Male

DRUGS (4)
  1. COSENTYX [Suspect]
     Active Substance: SECUKINUMAB
     Dosage: 150 MG, QW
     Route: 058
     Dates: start: 20180314
  2. COSENTYX [Suspect]
     Active Substance: SECUKINUMAB
     Indication: PSORIATIC ARTHROPATHY
     Dosage: 300 MG, QMO
     Route: 058
     Dates: start: 20171007
  3. COSENTYX [Suspect]
     Active Substance: SECUKINUMAB
     Dosage: 300 MG, QMO
     Route: 058
  4. PREDNISONE. [Suspect]
     Active Substance: PREDNISONE
     Indication: PRODUCT USED FOR UNKNOWN INDICATION
     Dosage: 70 MG, UNK
     Route: 065

REACTIONS (18)
  - Noninfective encephalitis [Unknown]
  - Gait disturbance [Recovering/Resolving]
  - Self-injurious ideation [Recovering/Resolving]
  - Asthenia [Unknown]
  - Psoriatic arthropathy [Unknown]
  - Feeling abnormal [Unknown]
  - Acne [Recovering/Resolving]
  - Drug ineffective [Unknown]
  - Dysuria [Unknown]
  - Malaise [Recovered/Resolved]
  - Blood test abnormal [Unknown]
  - Arthralgia [Unknown]
  - Psoriasis [Unknown]
  - Therapeutic response shortened [Unknown]
  - Infection [Recovered/Resolved]
  - Confusional state [Unknown]
  - Injection site pain [Unknown]
  - Pain [Unknown]

NARRATIVE: CASE EVENT DATE: 20180413
